FAERS Safety Report 6348173-8 (Version None)
Quarter: 2009Q3

REPORT INFORMATION
  Report Type: 
  Country: None (occurrence: None)
  Receive Date: 20090910
  Receipt Date: 20090706
  Transmission Date: 20100115
  Serious: Yes (Hospitalization)
  Sender: FDA-Public Use
  Company Number: FR-GENENTECH-287245

PATIENT
  Sex: Male

DRUGS (7)
  1. RITUXIMAB [Suspect]
     Indication: MANTLE CELL LYMPHOMA
     Dosage: 375 MG/M2, Q21D
     Route: 041
     Dates: start: 20081216
  2. CYTARABINE [Suspect]
     Indication: MANTLE CELL LYMPHOMA
     Dosage: 2000 MG/M2, UNK
     Route: 041
     Dates: start: 20081216, end: 20090405
  3. CISPLATIN [Suspect]
     Indication: MANTLE CELL LYMPHOMA
     Dosage: 100 MG/M2, Q21D
     Route: 042
     Dates: start: 20081216
  4. DEXAMETHASONE [Suspect]
     Indication: MANTLE CELL LYMPHOMA
     Dosage: 40 MG, UNK
     Route: 042
     Dates: start: 20081216
  5. CARMUSTINE [Suspect]
     Indication: MANTLE CELL LYMPHOMA
     Dosage: 300 MG/M2, UNK
     Route: 041
     Dates: start: 20090401, end: 20090401
  6. ETOPOSIDE [Suspect]
     Indication: MANTLE CELL LYMPHOMA
     Dosage: 400 MG/M2, UNK
     Route: 041
     Dates: start: 20080402, end: 20080405
  7. MELPHALAN HYDROCHLORIDE [Suspect]
     Indication: MANTLE CELL LYMPHOMA
     Dosage: 140 MG/M2, UNK
     Route: 041
     Dates: start: 20090406, end: 20090406

REACTIONS (4)
  - DIABETES MELLITUS [None]
  - FEBRILE BONE MARROW APLASIA [None]
  - MUCOSAL INFLAMMATION [None]
  - STREPTOCOCCAL SEPSIS [None]
